FAERS Safety Report 21902990 (Version 1)
Quarter: 2023Q1

REPORT INFORMATION
  Report Type: Spontaneous
  Country: DE (occurrence: DE)
  Receive Date: 20230124
  Receipt Date: 20230124
  Transmission Date: 20230418
  Serious: Yes (Other)
  Sender: FDA-Public Use
  Company Number: DE-ABBVIE-4234808

PATIENT
  Age: 41 Year
  Sex: Male
  Weight: 123 kg

DRUGS (2)
  1. AMLODIPINE [Suspect]
     Active Substance: AMLODIPINE BESYLATE
     Indication: Hypertension
     Dosage: 5 GRAM, TWO TIMES A DAY (FIRST ADMIN DATE: 08 AUG 2022)
     Route: 065
     Dates: start: 20220808
  2. RINVOQ [Suspect]
     Active Substance: UPADACITINIB
     Indication: Dermatitis atopic
     Dosage: 15 MILLIGRAM (FIRST ADMIN DATE: 13 SEP 2022)
     Route: 048
     Dates: start: 20220913

REACTIONS (3)
  - Renal impairment [Not Recovered/Not Resolved]
  - Dermatitis atopic [Recovering/Resolving]
  - Polyuria [Unknown]

NARRATIVE: CASE EVENT DATE: 20220101
